FAERS Safety Report 14603688 (Version 1)
Quarter: 2018Q1

REPORT INFORMATION
  Report Type: Spontaneous
  Country: US (occurrence: US)
  Receive Date: 20180306
  Receipt Date: 20180306
  Transmission Date: 20180509
  Serious: Yes (Death)
  Sender: FDA-Public Use
  Company Number: US-JNJFOC-20180302277

PATIENT
  Sex: Female

DRUGS (1)
  1. ELMIRON [Suspect]
     Active Substance: PENTOSAN POLYSULFATE SODIUM
     Indication: CYSTITIS INTERSTITIAL
     Route: 048

REACTIONS (8)
  - Lactobacillus infection [Unknown]
  - Candida infection [Unknown]
  - Bacteraemia [Unknown]
  - Streptococcal infection [Unknown]
  - Completed suicide [Fatal]
  - Cystitis interstitial [Fatal]
  - Escherichia infection [Unknown]
  - Ureaplasma infection [Unknown]
